FAERS Safety Report 6342368-5 (Version None)
Quarter: 2009Q3

REPORT INFORMATION
  Report Type: 
  Country: None (occurrence: None)
  Receive Date: 20090908
  Receipt Date: 20090901
  Transmission Date: 20100115
  Serious: Yes (Other)
  Sender: FDA-Public Use
  Company Number: US-ASTRAZENECA-2009UW11997

PATIENT
  Age: 49 Year
  Sex: Male
  Weight: 84.8 kg

DRUGS (5)
  1. SEROQUEL [Suspect]
     Indication: BIPOLAR DISORDER
     Dosage: UP TO 600 MG
     Route: 048
     Dates: start: 20030101, end: 20081201
  2. SEROQUEL [Suspect]
     Indication: DEPRESSION
     Dosage: UP TO 600 MG
     Route: 048
     Dates: start: 20030101, end: 20081201
  3. BOTOX [Concomitant]
     Dates: start: 20040101
  4. GEODON [Concomitant]
  5. TRAZODONE HCL [Concomitant]
     Dates: start: 20090101

REACTIONS (6)
  - BLOOD CHOLESTEROL INCREASED [None]
  - HEPATIC MASS [None]
  - INTERVERTEBRAL DISC PROTRUSION [None]
  - PNEUMONIA [None]
  - TORTICOLLIS [None]
  - TYPE 2 DIABETES MELLITUS [None]
